FAERS Safety Report 14991571 (Version 6)
Quarter: 2018Q3

REPORT INFORMATION
  Report Type: Report from Study
  Country: PL (occurrence: PL)
  Receive Date: 20180608
  Receipt Date: 20180926
  Transmission Date: 20181010
  Serious: Yes (Hospitalization, Other)
  Sender: FDA-Public Use
  Company Number: PL-EMD SERONO-9029891

PATIENT
  Age: 62 Year
  Sex: Male
  Weight: 97 kg

DRUGS (9)
  1. INSULIN [Concomitant]
     Active Substance: INSULIN NOS
     Indication: HYPERGLYCAEMIA
     Dosage: 8 IU?LONG LASTING
     Route: 058
     Dates: start: 20170126, end: 20170126
  2. INSULIN [Concomitant]
     Active Substance: INSULIN NOS
     Indication: TYPE 2 DIABETES MELLITUS
     Dosage: 8 IU
     Route: 058
     Dates: start: 20170126, end: 20170126
  3. LEVOTHYROXINE. [Concomitant]
     Active Substance: LEVOTHYROXINE
     Indication: AUTOIMMUNE THYROIDITIS
     Route: 048
     Dates: start: 20170826, end: 20170904
  4. AVELUMAB [Suspect]
     Active Substance: AVELUMAB
     Indication: NON-SMALL CELL LUNG CANCER
     Route: 042
     Dates: start: 20170112, end: 20180524
  5. LEVOTHYROXINE. [Concomitant]
     Active Substance: LEVOTHYROXINE
     Route: 048
     Dates: start: 20170905
  6. KETOPROFEN. [Concomitant]
     Active Substance: KETOPROFEN
     Indication: CHILLS
     Route: 042
     Dates: start: 20170126, end: 20170126
  7. INSULIN [Concomitant]
     Active Substance: INSULIN NOS
     Dosage: BY GLYCEMIA LEVEL (IU)?SHORT LASTING
     Route: 058
     Dates: start: 20170127
  8. ATORVASTATIN [Concomitant]
     Active Substance: ATORVASTATIN
     Indication: HYPERCHOLESTEROLAEMIA
     Route: 048
     Dates: start: 2010
  9. AMLODIPINE [Concomitant]
     Active Substance: AMLODIPINE BESYLATE
     Indication: HYPERTENSION
     Route: 048
     Dates: start: 2010

REACTIONS (1)
  - Colitis ulcerative [Not Recovered/Not Resolved]

NARRATIVE: CASE EVENT DATE: 20180530
